FAERS Safety Report 7431103-5 (Version None)
Quarter: 2011Q2

REPORT INFORMATION
  Report Type: 
  Country: None (occurrence: None)
  Receive Date: 20110421
  Receipt Date: 20110412
  Transmission Date: 20111010
  Serious: Yes (Death, Hospitalization)
  Sender: FDA-Public Use
  Company Number: US-B.I. PHARMACEUTICALS,INC./RIDGEFIELD-2011-BP-04695BP

PATIENT
  Sex: Male
  Weight: 77 kg

DRUGS (3)
  1. ASPIRIN [Concomitant]
     Dosage: 81 MG
     Route: 048
  2. PLAVIX [Concomitant]
     Dosage: 75 MG
     Route: 048
  3. PRADAXA [Suspect]
     Indication: ATRIAL FIBRILLATION
     Dosage: 300 MG
     Route: 048
     Dates: start: 20101218, end: 20110210

REACTIONS (8)
  - HYPOKALAEMIA [None]
  - FATIGUE [None]
  - GASTROINTESTINAL HAEMORRHAGE [None]
  - DIARRHOEA [None]
  - ABDOMINAL PAIN [None]
  - HAEMATOCHEZIA [None]
  - HYPOVOLAEMIA [None]
  - RENAL FAILURE ACUTE [None]
